FAERS Safety Report 21180139 (Version 2)
Quarter: 2022Q3

REPORT INFORMATION
  Report Type: Spontaneous
  Country: US (occurrence: US)
  Receive Date: 20220805
  Receipt Date: 20220806
  Transmission Date: 20221026
  Serious: Yes (Other)
  Sender: FDA-Public Use
  Company Number: US-NOVEN PHARMACEUTICALS, INC.-2022-NOV-US000720

PATIENT
  Age: 60 Year
  Sex: Female

DRUGS (3)
  1. MINIVELLE [Suspect]
     Active Substance: ESTRADIOL
     Indication: Menopause
     Dosage: 0.05 MILLIGRAM, UNKNOWN
     Route: 062
     Dates: start: 2022
  2. MINIVELLE [Suspect]
     Active Substance: ESTRADIOL
     Dosage: 0.05 MILLIGRAM, UNKNOWN
     Route: 062
  3. MINIVELLE [Suspect]
     Active Substance: ESTRADIOL
     Dosage: 0.05 MILLIGRAM, UNKNOWN
     Route: 062
     Dates: start: 2010

REACTIONS (2)
  - COVID-19 pneumonia [Recovered/Resolved]
  - COVID-19 [Recovering/Resolving]

NARRATIVE: CASE EVENT DATE: 20210915
